FAERS Safety Report 8377979-9 (Version None)
Quarter: 2012Q2

REPORT INFORMATION
  Report Type: 
  Country: None (occurrence: None)
  Receive Date: 20120522
  Receipt Date: 20120516
  Transmission Date: 20120825
  Serious: Yes (Hospitalization)
  Sender: FDA-Public Use
  Company Number: AU-JNJFOC-20120307922

PATIENT
  Sex: Female

DRUGS (1)
  1. REMICADE [Suspect]
     Indication: CROHN'S DISEASE
     Route: 042

REACTIONS (4)
  - FATIGUE [None]
  - HEPATIC FUNCTION ABNORMAL [None]
  - ABDOMINAL PAIN UPPER [None]
  - POST PROCEDURAL HAEMORRHAGE [None]
